FAERS Safety Report 6081043-1 (Version None)
Quarter: 2009Q1

REPORT INFORMATION
  Report Type: 
  Country: None (occurrence: None)
  Receive Date: 20090217
  Receipt Date: 20090209
  Transmission Date: 20090719
  Serious: Yes (Other)
  Sender: FDA-Public Use
  Company Number: PHHY2009CA04954

PATIENT
  Sex: Male

DRUGS (1)
  1. ZOMETA [Suspect]

REACTIONS (2)
  - OSTEONECROSIS [None]
  - PAIN IN JAW [None]
